FAERS Safety Report 5631082-7 (Version None)
Quarter: 2008Q1

REPORT INFORMATION
  Report Type: 
  Country: None (occurrence: None)
  Receive Date: 20080131
  Receipt Date: 20071211
  Transmission Date: 20080703
  Serious: No
  Sender: FDA-Public Use
  Company Number: 163-21880-07111119

PATIENT
  Age: 73 Year
  Sex: Female

DRUGS (3)
  1. REVLIMID [Suspect]
     Indication: MULTIPLE MYELOMA
     Dosage: 25, MG, 1 IN 1 D, 25 MG, DAILY X 21 DAYS, ORAL
     Route: 048
     Dates: start: 20070529, end: 20071001
  2. REVLIMID [Suspect]
     Indication: MULTIPLE MYELOMA
     Dosage: 25, MG, 1 IN 1 D, 25 MG, DAILY X 21 DAYS, ORAL
     Route: 048
     Dates: start: 20071121, end: 20071211
  3. REVLIMID [Suspect]
     Indication: MULTIPLE MYELOMA
     Dosage: 25, MG, 1 IN 1 D, 25 MG, DAILY X 21 DAYS, ORAL
     Route: 048
     Dates: start: 20071211

REACTIONS (1)
  - NEUROPATHY PERIPHERAL [None]
